FAERS Safety Report 6656730-4 (Version None)
Quarter: 2010Q1

REPORT INFORMATION
  Report Type: 
  Country: None (occurrence: None)
  Receive Date: 20100324
  Receipt Date: 20100311
  Transmission Date: 20100710
  Serious: Yes (Hospitalization, Disabling, Other)
  Sender: FDA-Public Use
  Company Number: 232553J10USA

PATIENT
  Age: 56 Year
  Sex: Female

DRUGS (3)
  1. REBIF [Suspect]
     Indication: MULTIPLE SCLEROSIS
     Dosage: 44 MCG, 3 IN 1 WEEKS, SUBCUTANEOUS
     Route: 058
     Dates: start: 20040712
  2. ENABLEX (DARIFENACIN) [Concomitant]
  3. TYLENOL [Concomitant]

REACTIONS (12)
  - CONCUSSION [None]
  - DEAFNESS UNILATERAL [None]
  - FALL [None]
  - HEAD INJURY [None]
  - HEADACHE [None]
  - HYPERTENSION [None]
  - IRRITABILITY [None]
  - MEMORY IMPAIRMENT [None]
  - RECTOCELE [None]
  - TINNITUS [None]
  - UNEVALUABLE EVENT [None]
  - URINARY RETENTION [None]
